FAERS Safety Report 8043365-4 (Version None)
Quarter: 2012Q1

REPORT INFORMATION
  Report Type: 
  Country: None (occurrence: None)
  Receive Date: 20120112
  Receipt Date: 20120104
  Transmission Date: 20120608
  Serious: Yes (Hospitalization, Other)
  Sender: FDA-Public Use
  Company Number: US-US-EMD SERONO, INC.-231442K06USA

PATIENT
  Sex: Male
  Weight: 79 kg

DRUGS (2)
  1. REBIF [Suspect]
     Route: 058
     Dates: start: 20060701
  2. REBIF [Suspect]
     Indication: MULTIPLE SCLEROSIS
     Route: 058
     Dates: start: 20030922, end: 20060501

REACTIONS (4)
  - DIABETES MELLITUS [None]
  - RASH PAPULAR [None]
  - INJECTION SITE MASS [None]
  - CORONARY ARTERY DISEASE [None]
